FAERS Safety Report 6101755-0 (Version None)
Quarter: 2009Q1

REPORT INFORMATION
  Report Type: 
  Country: None (occurrence: None)
  Receive Date: 20090304
  Receipt Date: 20090302
  Transmission Date: 20090719
  Serious: Yes (Hospitalization)
  Sender: FDA-Public Use
  Company Number: B0562702A

PATIENT
  Age: 63 Year
  Sex: Female

DRUGS (8)
  1. CARVEDILOL [Suspect]
     Indication: DRUG USE FOR UNKNOWN INDICATION
     Dosage: 6.25MG PER DAY
     Route: 048
     Dates: start: 20080601, end: 20081203
  2. CORDARONE [Suspect]
     Indication: DRUG USE FOR UNKNOWN INDICATION
     Dosage: 150MG PER DAY
     Route: 048
     Dates: start: 20080601, end: 20081203
  3. RASILEZ [Suspect]
     Indication: DRUG USE FOR UNKNOWN INDICATION
     Dosage: 150MG PER DAY
     Route: 048
     Dates: start: 20080601, end: 20081203
  4. ALDOZONE [Suspect]
     Route: 048
     Dates: start: 20050101, end: 20081203
  5. ARIMIDEX [Suspect]
     Route: 048
     Dates: start: 20030101, end: 20081203
  6. HYDROXYUREA [Suspect]
     Indication: MYELOPROLIFERATIVE DISORDER
     Dosage: 500MG PER DAY
     Route: 048
     Dates: start: 19980101, end: 20081203
  7. SINTROM [Concomitant]
     Route: 065
     Dates: start: 19980101
  8. ANTRA [Concomitant]
     Route: 065
     Dates: start: 19980101

REACTIONS (20)
  - ALANINE AMINOTRANSFERASE INCREASED [None]
  - ASPARTATE AMINOTRANSFERASE INCREASED [None]
  - ATRIOVENTRICULAR BLOCK [None]
  - BILIRUBIN CONJUGATED INCREASED [None]
  - BLOOD ALKALINE PHOSPHATASE INCREASED [None]
  - BLOOD BILIRUBIN INCREASED [None]
  - CHOLESTASIS [None]
  - DRUG INTERACTION [None]
  - FIBROSIS [None]
  - GAMMA-GLUTAMYLTRANSFERASE INCREASED [None]
  - GRANULOCYTES ABNORMAL [None]
  - HEPATIC VEIN THROMBOSIS [None]
  - HEPATITIS CHOLESTATIC [None]
  - INFLUENZA [None]
  - ISCHAEMIA [None]
  - JAUNDICE [None]
  - MULTI-ORGAN FAILURE [None]
  - NECROSIS [None]
  - RESPIRATORY FAILURE [None]
  - SEPSIS [None]
